FAERS Safety Report 10560102 (Version 2)
Quarter: 2014Q4

REPORT INFORMATION
  Report Type: Report from Study
  Country: US (occurrence: US)
  Receive Date: 20141103
  Receipt Date: 20141124
  Transmission Date: 20150529
  Serious: Yes (Hospitalization)
  Sender: FDA-Public Use
  Company Number: US-JNJFOC-20141015913

PATIENT
  Age: 21 Year
  Sex: Male

DRUGS (2)
  1. INVEGA SUSTENNA [Suspect]
     Active Substance: PALIPERIDONE PALMITATE
     Indication: BIPOLAR DISORDER
     Route: 030
     Dates: start: 201410
  2. INVEGA SUSTENNA [Suspect]
     Active Substance: PALIPERIDONE PALMITATE
     Indication: BIPOLAR DISORDER
     Route: 030
     Dates: start: 2012, end: 201304

REACTIONS (9)
  - Agitation [Unknown]
  - Hyperphagia [Unknown]
  - Hospitalisation [Recovered/Resolved]
  - Mania [Unknown]
  - Product use issue [Unknown]
  - Weight increased [Unknown]
  - Speech disorder [Unknown]
  - Aphasia [Unknown]
  - Restlessness [Unknown]

NARRATIVE: CASE EVENT DATE: 2012
